FAERS Safety Report 7904360-6 (Version None)
Quarter: 2011Q4

REPORT INFORMATION
  Report Type: 
  Country: None (occurrence: None)
  Receive Date: 20111109
  Receipt Date: 20111107
  Transmission Date: 20120403
  Serious: Yes (Hospitalization, Other)
  Sender: FDA-Public Use
  Company Number: BR-PFIZER INC-2011258704

PATIENT
  Age: 43 Year
  Sex: Male

DRUGS (10)
  1. DIOVAN [Suspect]
     Indication: HYPERTENSION
     Dosage: 320 MG, DAILY
  2. LORAZEPAM [Concomitant]
  3. AMLODIPINE BESYLATE [Suspect]
     Indication: HYPERTENSION
     Dosage: 15 MG, UNK
  4. HYGROTON [Suspect]
     Indication: HYPERTENSION
     Dosage: 25 MG, DAILY
  5. METHYLDOPA [Suspect]
     Indication: HYPERTENSION
     Dosage: 1500 MG DAILY
  6. ATENOLOL [Suspect]
     Indication: HYPERTENSION
     Dosage: 100 MG, DAILY
  7. SPIRONOLACTONE [Suspect]
     Indication: HYPERTENSION
     Dosage: 25 MG, DAILY
  8. MINOXIDIL [Suspect]
     Indication: HYPERTENSION
     Dosage: 10 MG, DAILY
  9. CLONIDINE [Suspect]
     Indication: HYPERTENSION
     Dosage: 300 MG, DAILY
  10. IMIPRAMINE [Concomitant]

REACTIONS (6)
  - BLOOD CREATININE INCREASED [None]
  - HYPERTENSION [None]
  - GLOMERULOSCLEROSIS [None]
  - HEART RATE INCREASED [None]
  - VENTRICULAR HYPERTROPHY [None]
  - RENAL TUBULAR DISORDER [None]
